FAERS Safety Report 4360169-4 (Version None)
Quarter: 2004Q2

REPORT INFORMATION
  Report Type: 
  Country: None (occurrence: None)
  Receive Date: 20040514
  Receipt Date: 20040430
  Transmission Date: 20050107
  Serious: Yes (Hospitalization)
  Sender: FDA-Public Use
  Company Number: 2004-0006931

PATIENT
  Age: 32 Year
  Sex: Male

DRUGS (4)
  1. ADEFOVIR DIPIVOXIL    (ADEFOVIR DIPIVOXIL) [Suspect]
     Indication: HEPATITIS B
     Dosage: 10 MG, 1 IN 1 D, ORAL
     Route: 048
     Dates: start: 20021230, end: 20030324
  2. ADEFOVIR DIPIVOXIL    (ADEFOVIR DIPIVOXIL) [Suspect]
     Indication: HEPATITIS B
     Dosage: 10 MG, 1 IN 1 D, ORAL
     Route: 048
     Dates: start: 20030325, end: 20031006
  3. ADEFOVIR DIPIVOXIL    (ADEFOVIR DIPIVOXIL) [Suspect]
     Indication: HEPATITIS B
     Dosage: 10 MG, 1 IN 1 D, ORAL
     Route: 048
     Dates: start: 20031227
  4. PLACEBO (PLACEBO) [Suspect]
     Indication: HEPATITIS B
     Dates: start: 20031007, end: 20031226

REACTIONS (4)
  - DIABETES MELLITUS [None]
  - GLYCOSYLATED HAEMOGLOBIN INCREASED [None]
  - LOWER LIMB FRACTURE [None]
  - ROAD TRAFFIC ACCIDENT [None]
